FAERS Safety Report 5269075-4 (Version None)
Quarter: 2007Q1

REPORT INFORMATION
  Report Type: 
  Country: None (occurrence: None)
  Receive Date: 20070319
  Receipt Date: 20070305
  Transmission Date: 20070707
  Serious: Yes (Other)
  Sender: FDA-Public Use
  Company Number: US-ELI_LILLY_AND_COMPANY-US200703001066

PATIENT
  Age: 44 Year
  Sex: Female

DRUGS (10)
  1. CYMBALTA [Suspect]
     Indication: FIBROMYALGIA
     Dosage: 30 MG, DAILY (1/D)
  2. CYMBALTA [Suspect]
     Dosage: 60 MG, DAILY (1/D)
  3. TRAMADOL HCL [Concomitant]
  4. TEMAZEPAM [Concomitant]
  5. DIAZEPAM [Concomitant]
  6. ORAL CONTRACEPTIVE NOS [Concomitant]
  7. SYNTHROID [Concomitant]
  8. ZELNORM [Concomitant]
  9. LIDOCAINE [Concomitant]
     Route: 061
  10. ARTHROTEC [Concomitant]

REACTIONS (11)
  - ARTHRITIS [None]
  - CONSTIPATION [None]
  - HYPERTHYROIDISM [None]
  - HYPOTHYROIDISM [None]
  - IMPAIRED DRIVING ABILITY [None]
  - INTERVERTEBRAL DISC PROTRUSION [None]
  - IRRITABLE BOWEL SYNDROME [None]
  - LOSS OF CONSCIOUSNESS [None]
  - LOSS OF EMPLOYMENT [None]
  - MUSCLE DISORDER [None]
  - NARCOLEPSY [None]
